FAERS Safety Report 14222572 (Version 1)
Quarter: 2017Q4

REPORT INFORMATION
  Report Type: Spontaneous
  Country: US (occurrence: US)
  Receive Date: 20171124
  Receipt Date: 20171124
  Transmission Date: 20180321
  Serious: No
  Sender: FDA-Public Use
  Company Number: US-JNJFOC-20171115100

PATIENT
  Sex: Female

DRUGS (2)
  1. REMICADE [Suspect]
     Active Substance: INFLIXIMAB
     Indication: PRODUCT USED FOR UNKNOWN INDICATION
     Route: 042
     Dates: start: 201008, end: 201010
  2. METHOTREXATE. [Concomitant]
     Active Substance: METHOTREXATE
     Route: 065
     Dates: start: 200912, end: 201111

REACTIONS (1)
  - Drug tolerance decreased [Unknown]
